FAERS Safety Report 9467344 (Version 5)
Quarter: 2016Q1

REPORT INFORMATION
  Report Type: Report from Study
  Country: CA (occurrence: CA)
  Receive Date: 20130821
  Receipt Date: 20160202
  Transmission Date: 20160526
  Serious: Yes (Other)
  Sender: FDA-Public Use
  Company Number: CA-ROCHE-1263120

PATIENT
  Age: 63 Year
  Sex: Female
  Weight: 44 kg

DRUGS (13)
  1. ACETAMINOPHEN. [Concomitant]
     Active Substance: ACETAMINOPHEN
     Indication: PREMEDICATION
     Route: 048
     Dates: start: 20090903
  2. RITUXAN [Suspect]
     Active Substance: RITUXIMAB
     Indication: RHEUMATOID ARTHRITIS
     Dosage: FREQUENCY:  DAY 1 AND DAY 15 LATEST INFUSION ON 14/NOV/2013
     Route: 042
     Dates: start: 20061124
  3. RITUXAN [Suspect]
     Active Substance: RITUXIMAB
     Indication: CREST SYNDROME
     Dosage: FREQUENCY:  DAY 1 AND DAY 15
     Route: 042
     Dates: start: 20090903
  4. PAXIL (CANADA) [Concomitant]
  5. METHOTREXATE [Suspect]
     Active Substance: METHOTREXATE
     Indication: PRODUCT USED FOR UNKNOWN INDICATION
     Route: 048
  6. PANTOPRAZOLE [Concomitant]
     Active Substance: PANTOPRAZOLE SODIUM
  7. SOLU-CORTEF INJECTABLE [Concomitant]
     Indication: PREMEDICATION
     Route: 042
     Dates: start: 20120419
  8. DIPHENHYDRAMINE HCL [Concomitant]
     Active Substance: DIPHENHYDRAMINE HYDROCHLORIDE
     Indication: PREMEDICATION
     Route: 048
     Dates: start: 20090903
  9. RITUXAN [Suspect]
     Active Substance: RITUXIMAB
     Dosage: FREQUENCY:  DAY 1 AND DAY 15, PREVIOUS RITUXIMAB DOSE ON 28/DEC/2012
     Route: 042
     Dates: start: 20121214
  10. FOLIC ACID. [Concomitant]
     Active Substance: FOLIC ACID
  11. PREDNISONE. [Concomitant]
     Active Substance: PREDNISONE
     Indication: PREMEDICATION
     Route: 048
     Dates: start: 20110907, end: 20110920
  12. TUMS [Concomitant]
     Active Substance: CALCIUM CARBONATE
  13. ECTOSONE [Concomitant]

REACTIONS (18)
  - Joint injury [Unknown]
  - Ear pruritus [Recovered/Resolved]
  - Ear pain [Recovered/Resolved]
  - Throat irritation [Recovered/Resolved]
  - Respiratory tract congestion [Unknown]
  - Diarrhoea [Recovered/Resolved]
  - Dermatitis [Unknown]
  - Headache [Recovered/Resolved]
  - Abdominal pain upper [Recovered/Resolved]
  - Rheumatoid arthritis [Unknown]
  - Influenza [Unknown]
  - Trigger finger [Not Recovered/Not Resolved]
  - Nausea [Recovered/Resolved]
  - Pain [Recovered/Resolved]
  - Product use issue [Unknown]
  - Oropharyngeal pain [Recovered/Resolved]
  - Pyrexia [Recovered/Resolved]
  - Fatigue [Recovered/Resolved]

NARRATIVE: CASE EVENT DATE: 2013
